FAERS Safety Report 23825166 (Version 4)
Quarter: 2024Q3

REPORT INFORMATION
  Report Type: Spontaneous
  Country: US (occurrence: US)
  Receive Date: 20240507
  Receipt Date: 20240830
  Transmission Date: 20241016
  Serious: No
  Sender: PFIZER
  Company Number: US-PFIZER INC-202400099957

PATIENT
  Age: 76 Year
  Sex: Female

DRUGS (1)
  1. ESTRING [Suspect]
     Active Substance: ESTRADIOL
     Dosage: ESTRING 7.5MCG/24HR MIS PFIZ
     Dates: start: 20240501, end: 20240501

REACTIONS (3)
  - Device difficult to use [Unknown]
  - Device use error [Unknown]
  - Medical device site pain [Recovering/Resolving]

NARRATIVE: CASE EVENT DATE: 20240501
